FAERS Safety Report 19722778 (Version 2)
Quarter: 2022Q4

REPORT INFORMATION
  Report Type: Spontaneous
  Country: DE (occurrence: DE)
  Receive Date: 20210819
  Receipt Date: 20221102
  Transmission Date: 20230113
  Serious: Yes (Hospitalization, Other)
  Sender: FDA-Public Use
  Company Number: DE-ADRED-07000-01

PATIENT
  Age: 77 Year
  Sex: Female
  Weight: 77 kg

DRUGS (9)
  1. AMISULPRIDE [Suspect]
     Active Substance: AMISULPRIDE
     Indication: Product used for unknown indication
     Dosage: 50 MILLIGRAM DAILY; 1-0-0-0
  2. TRIMIPRAMINE [Suspect]
     Active Substance: TRIMIPRAMINE
     Indication: Product used for unknown indication
     Dosage: 25 MILLIGRAM DAILY; 0-0-0-1
  3. RISPERIDONE [Suspect]
     Active Substance: RISPERIDONE
     Indication: Product used for unknown indication
     Dosage: 1 MILLIGRAM DAILY; 1-0-1-0
  4. FOLIC ACID [Concomitant]
     Active Substance: FOLIC ACID
     Indication: Product used for unknown indication
     Dosage: 5 MG, SCHEME
  5. SITAGLIPTIN [Concomitant]
     Active Substance: SITAGLIPTIN
     Indication: Product used for unknown indication
     Dosage: 50 MILLIGRAM DAILY;  1-0-0-0
  6. Calciumcarbonat/Colecalciferol (Vitamin D) [Concomitant]
     Indication: Product used for unknown indication
     Dosage: 1 DOSAGE FORMS DAILY; 600|400 IE, 1-0-0-0
  7. METHOTREXATE [Concomitant]
     Active Substance: METHOTREXATE
     Indication: Product used for unknown indication
     Dosage: 12.5 MG, SCHEME
  8. PREDNISOLONE [Concomitant]
     Active Substance: PREDNISOLONE
     Indication: Product used for unknown indication
     Dosage: 1 MILLIGRAM DAILY;  1-0-0-0
  9. GLIMEPIRIDE [Concomitant]
     Active Substance: GLIMEPIRIDE
     Indication: Product used for unknown indication
     Dosage: 1 MILLIGRAM DAILY; 1-0-0-0

REACTIONS (16)
  - Dizziness [Unknown]
  - Tachycardia [Unknown]
  - Electrocardiogram abnormal [Unknown]
  - Jaundice [Unknown]
  - Palpitations [Unknown]
  - Skin irritation [Unknown]
  - Taste disorder [Unknown]
  - Abdominal pain [Unknown]
  - Hyperglycaemia [Unknown]
  - Fall [Unknown]
  - Loss of consciousness [Unknown]
  - Diarrhoea [Unknown]
  - Syncope [Unknown]
  - Supraventricular tachycardia [Unknown]
  - Atrioventricular block first degree [Unknown]
  - Wound [Unknown]
